FAERS Safety Report 12954195 (Version 1)
Quarter: 2016Q4

REPORT INFORMATION
  Report Type: Spontaneous
  Country: US (occurrence: US)
  Receive Date: 20161117
  Receipt Date: 20161117
  Transmission Date: 20170207
  Serious: Yes (Hospitalization)
  Sender: FDA-Public Use
  Company Number: None

PATIENT
  Age: 15 Year
  Sex: Female
  Weight: 73.4 kg

DRUGS (4)
  1. DEXAMETHASONE. [Suspect]
     Active Substance: DEXAMETHASONE
     Dates: end: 20161113
  2. VINCRISTINE SULFATE. [Suspect]
     Active Substance: VINCRISTINE SULFATE
     Dates: end: 20161107
  3. ONCASPAR [Concomitant]
     Active Substance: PEGASPARGASE
     Dates: end: 20161110
  4. DOXORUBICIN HYDROCHLORIDE. [Suspect]
     Active Substance: DOXORUBICIN HYDROCHLORIDE
     Dates: end: 20161107

REACTIONS (7)
  - Blood glucose increased [None]
  - Fatigue [None]
  - Asthenia [None]
  - Polyuria [None]
  - Nausea [None]
  - Emotional distress [None]
  - Neurological symptom [None]

NARRATIVE: CASE EVENT DATE: 20161113
